FAERS Safety Report 17718565 (Version 15)
Quarter: 2022Q2

REPORT INFORMATION
  Report Type: Spontaneous
  Country: US (occurrence: US)
  Receive Date: 20200428
  Receipt Date: 20220524
  Transmission Date: 20220721
  Serious: Yes (Disabling, Other)
  Sender: FDA-Public Use
  Company Number: US-PFIZER INC-2020170365

PATIENT
  Age: 79 Year
  Sex: Female
  Weight: 77.11 kg

DRUGS (1)
  1. PREMPRO [Suspect]
     Active Substance: ESTROGENS, CONJUGATED\MEDROXYPROGESTERONE ACETATE
     Dosage: UNK

REACTIONS (5)
  - Retinal detachment [Unknown]
  - Blindness [Unknown]
  - Therapeutic response unexpected [Unknown]
  - Visual impairment [Unknown]
  - Product dispensing error [Unknown]
